FAERS Safety Report 9802727 (Version 2)
Quarter: 2014Q1

REPORT INFORMATION
  Report Type: Spontaneous
  Country: DE (occurrence: DE)
  Receive Date: 20140108
  Receipt Date: 20140306
  Transmission Date: 20141002
  Serious: Yes (Hospitalization, Other)
  Sender: FDA-Public Use
  Company Number: DE-BRISTOL-MYERS SQUIBB COMPANY-19957604

PATIENT
  Age: 82 Year
  Sex: Male
  Weight: 87 kg

DRUGS (3)
  1. ELIQUIS [Suspect]
     Indication: CEREBROVASCULAR ACCIDENT PROPHYLAXIS
     Dosage: ONGOING ?TABS
     Dates: start: 201312
  2. RAMIPRIL [Concomitant]
  3. PANTOPRAZOLE [Concomitant]

REACTIONS (1)
  - Skin cancer [Recovered/Resolved]
